FAERS Safety Report 11804754 (Version 2)
Quarter: 2016Q2

REPORT INFORMATION
  Report Type: Spontaneous
  Country: US (occurrence: US)
  Receive Date: 20151205
  Receipt Date: 20160428
  Transmission Date: 20160815
  Serious: No
  Sender: FDA-Public Use
  Company Number: PHEH2015US024712

PATIENT
  Age: 56 Year
  Sex: Female
  Weight: 89 kg

DRUGS (1)
  1. COSENTYX [Suspect]
     Active Substance: SECUKINUMAB
     Indication: PSORIASIS
     Dosage: 300 MG, QMO
     Route: 058
     Dates: start: 20150715

REACTIONS (11)
  - Visual acuity reduced [Unknown]
  - Eye inflammation [Not Recovered/Not Resolved]
  - Lacrimation increased [Unknown]
  - Photophobia [Unknown]
  - Pruritus [Not Recovered/Not Resolved]
  - Vitreous floaters [Unknown]
  - Headache [Unknown]
  - Nausea [Unknown]
  - Vision blurred [Unknown]
  - Ocular hyperaemia [Unknown]
  - Eye pain [Unknown]

NARRATIVE: CASE EVENT DATE: 20151120
